FAERS Safety Report 4796372-9 (Version None)
Quarter: 2005Q4

REPORT INFORMATION
  Report Type: 
  Country: None (occurrence: None)
  Receive Date: 20051007
  Receipt Date: 20050928
  Transmission Date: 20060501
  Serious: Yes (Hospitalization)
  Sender: FDA-Public Use
  Company Number: 2005-09-1615

PATIENT
  Age: 54 Year
  Sex: Male

DRUGS (5)
  1. PEG-INTRON (PEGINTERFERON ALFA-2B)  INJECTABLE [Suspect]
     Indication: HEPATITIS C
     Dosage: 50 MCG QWK SUBCUTANEOUS
     Route: 058
     Dates: start: 20040716, end: 20041104
  2. REBETOL [Suspect]
     Indication: HEPATITIS C
     Dosage: 200 MG ORAL
     Route: 048
     Dates: start: 20040716, end: 20041104
  3. CICLOSPORIN [Concomitant]
  4. ALLOPURINOL [Concomitant]
  5. URSODEOXYCHOLIC ACID [Concomitant]

REACTIONS (1)
  - LIVER TRANSPLANT REJECTION [None]
